FAERS Safety Report 8202251-7 (Version None)
Quarter: 2012Q1

REPORT INFORMATION
  Report Type: 
  Country: None (occurrence: None)
  Receive Date: 20120312
  Receipt Date: 20120201
  Transmission Date: 20120608
  Serious: Yes (Death)
  Sender: FDA-Public Use
  Company Number: FI-PFIZER INC-2012049008

PATIENT
  Age: 31 Year
  Sex: Male

DRUGS (3)
  1. OXAZEPAM [Concomitant]
  2. TEMAZEPAM [Concomitant]
  3. PREGABALIN [Suspect]
     Dosage: UNK

REACTIONS (2)
  - POISONING [None]
  - COMPLETED SUICIDE [None]
